FAERS Safety Report 22115842 (Version 2)
Quarter: 2023Q2

REPORT INFORMATION
  Report Type: Spontaneous
  Country: US (occurrence: US)
  Receive Date: 20230320
  Receipt Date: 20230421
  Transmission Date: 20230722
  Serious: Yes (Other)
  Sender: FDA-Public Use
  Company Number: US-ALEMBIC PHARMACUETICALS LIMITED-2023SCAL000104

PATIENT

DRUGS (2)
  1. METOPROLOL TARTRATE [Interacting]
     Active Substance: METOPROLOL TARTRATE
     Indication: Product used for unknown indication
     Dosage: UNK
     Route: 065
  2. DULOXETINE HYDROCHLORIDE [Interacting]
     Active Substance: DULOXETINE HYDROCHLORIDE
     Indication: Product used for unknown indication
     Dosage: UNK
     Route: 065

REACTIONS (3)
  - Cerebrovascular accident [Unknown]
  - Hypertensive emergency [Unknown]
  - Drug interaction [Unknown]
